FAERS Safety Report 13397191 (Version 1)
Quarter: 2017Q2

REPORT INFORMATION
  Report Type: Other
  Country: SG (occurrence: SG)
  Receive Date: 20170403
  Receipt Date: 20170403
  Transmission Date: 20170830
  Serious: Yes (Hospitalization)
  Sender: FDA-Public Use
  Company Number: SG-DRUG SAFETY NAVIGATOR-1064925

PATIENT
  Age: 54 Year
  Sex: Male

DRUGS (1)
  1. ERGOMAR [Suspect]
     Active Substance: ERGOTAMINE TARTRATE
     Indication: MIGRAINE
     Route: 048

REACTIONS (1)
  - Renal infarct [Recovered/Resolved]
